FAERS Safety Report 7914046-X (Version None)
Quarter: 2011Q4

REPORT INFORMATION
  Report Type: 
  Country: None (occurrence: None)
  Receive Date: 20111115
  Receipt Date: 20111110
  Transmission Date: 20120403
  Serious: Yes (Other)
  Sender: FDA-Public Use
  Company Number: US-PFIZER INC-2011276668

PATIENT
  Sex: Female
  Weight: 90.703 kg

DRUGS (3)
  1. ACEON [Concomitant]
     Indication: HYPERTENSION
     Dosage: 8 MG, DAILY
  2. IBUPROFEN (ADVIL) [Suspect]
     Indication: ARTHRALGIA
  3. IBUPROFEN (ADVIL) [Suspect]
     Indication: BACK PAIN
     Dosage: 3 OR 4 LIQUI-GELS OF 200MG, AS NEEDED
     Route: 048

REACTIONS (1)
  - LIMB OPERATION [None]
